FAERS Safety Report 7070326-4 (Version None)
Quarter: 2010Q4

REPORT INFORMATION
  Report Type: 
  Country: None (occurrence: None)
  Receive Date: 20101028
  Receipt Date: 20101019
  Transmission Date: 20110411
  Serious: No
  Sender: FDA-Public Use
  Company Number: US-WYE-H18259510

PATIENT
  Age: 87 Year
  Sex: Female
  Weight: 65.38 kg

DRUGS (2)
  1. ADVIL [Suspect]
     Indication: BACK PAIN
     Dosage: 1 CAPLET TWICE DAILY TO FOUR TIMES DAILY
     Route: 048
     Dates: start: 20101009, end: 20101019
  2. ATENOLOL [Concomitant]

REACTIONS (3)
  - HYPERSENSITIVITY [None]
  - LIP EXFOLIATION [None]
  - LIP SWELLING [None]
